FAERS Safety Report 7530087-9 (Version None)
Quarter: 2011Q2

REPORT INFORMATION
  Report Type: 
  Country: None (occurrence: None)
  Receive Date: 20110607
  Receipt Date: 20110602
  Transmission Date: 20111010
  Serious: Yes (Death, Hospitalization)
  Sender: FDA-Public Use
  Company Number: PHHY2011MX28137

PATIENT
  Age: 88 Year
  Sex: Female

DRUGS (3)
  1. PLASMA [Concomitant]
  2. RED BLOOD CELLS [Concomitant]
  3. ZOLEDRONIC ACID [Suspect]
     Indication: OSTEOPOROSIS
     Dosage: 5 MG, UNK
     Route: 042
     Dates: start: 20110225

REACTIONS (7)
  - GASTROINTESTINAL INFECTION [None]
  - MALNUTRITION [None]
  - RENAL FAILURE [None]
  - GASTROENTERITIS [None]
  - DEHYDRATION [None]
  - ANAEMIA [None]
  - OSTEOPOROSIS [None]
